FAERS Safety Report 8064269-7 (Version None)
Quarter: 2011Q4

REPORT INFORMATION
  Report Type: 
  Country: None (occurrence: None)
  Receive Date: 20111221
  Receipt Date: 20110808
  Transmission Date: 20120403
  Serious: Yes (Other)
  Sender: FDA-Public Use
  Company Number: 2011SP000061

PATIENT
  Age: 50 Year
  Sex: Male
  Weight: 68.0396 kg

DRUGS (11)
  1. BENADRYL [Concomitant]
  2. KRYSTEXXA [Suspect]
     Indication: GOUT
     Dosage: 8 MG;X1; IV
     Route: 042
     Dates: start: 20110809, end: 20110809
  3. KRYSTEXXA [Suspect]
     Indication: GOUT
     Dosage: 8 MG;X1; IV
     Route: 042
     Dates: start: 20110712, end: 20110712
  4. KRYSTEXXA [Suspect]
     Indication: GOUT
     Dosage: 8 MG;X1; IV
     Route: 042
     Dates: start: 20110726, end: 20110726
  5. RETROVIR [Concomitant]
  6. EPIVIRR [Concomitant]
  7. MARAVIROC [Concomitant]
  8. LIPITOR [Concomitant]
  9. SOLU-MEDROL [Concomitant]
  10. DARUNAVIR ETHANOLATE [Concomitant]
  11. TYLENOL (CAPLET) [Concomitant]

REACTIONS (3)
  - NASAL DISCOMFORT [None]
  - MUSCLE SPASMS [None]
  - INFUSION RELATED REACTION [None]
